FAERS Safety Report 7394254-X (Version None)
Quarter: 2011Q2

REPORT INFORMATION
  Report Type: 
  Country: None (occurrence: None)
  Receive Date: 20110405
  Receipt Date: 20110228
  Transmission Date: 20111010
  Serious: Yes (Hospitalization)
  Sender: FDA-Public Use
  Company Number: US-BAYER-201033972NA

PATIENT
  Sex: Female
  Weight: 104.5 kg

DRUGS (3)
  1. YASMIN [Suspect]
     Indication: ORAL CONTRACEPTION
     Dates: start: 20020801, end: 20080101
  2. YASMIN [Suspect]
     Dosage: 1 TAB/DAY
     Dates: start: 20080501, end: 20080813
  3. OCELLA [Suspect]
     Indication: ORAL CONTRACEPTION
     Dosage: 1 TAB/DAY

REACTIONS (2)
  - PULMONARY EMBOLISM [None]
  - DEEP VEIN THROMBOSIS [None]
